FAERS Safety Report 15230347 (Version 2)
Quarter: 2018Q4

REPORT INFORMATION
  Report Type: Spontaneous
  Country: CN (occurrence: CN)
  Receive Date: 20180802
  Receipt Date: 20180803
  Transmission Date: 20190204
  Serious: Yes (Hospitalization, Other)
  Sender: FDA-Public Use
  Company Number: CN-009507513-1807CHN011843

PATIENT
  Age: 42 Year
  Sex: Male

DRUGS (2)
  1. DESLORATADINE CITRATE DISODIUM [Suspect]
     Active Substance: DESLORATADINE
     Indication: POLYMORPHIC LIGHT ERUPTION
     Route: 048
  2. DIPROSPAN [Suspect]
     Active Substance: BETAMETHASONE DIPROPIONATE\BETAMETHASONE SODIUM PHOSPHATE
     Indication: POLYMORPHIC LIGHT ERUPTION
     Route: 030

REACTIONS (2)
  - Anaphylactic shock [Recovered/Resolved]
  - Urticaria [Recovered/Resolved]
